FAERS Safety Report 7389823-7 (Version None)
Quarter: 2011Q2

REPORT INFORMATION
  Report Type: 
  Country: None (occurrence: None)
  Receive Date: 20110401
  Receipt Date: 20110317
  Transmission Date: 20111010
  Serious: Yes (Hospitalization)
  Sender: FDA-Public Use
  Company Number: US-JNJFOC-20110309373

PATIENT
  Sex: Male

DRUGS (3)
  1. UNKNOWN MEDICATION [Concomitant]
     Route: 048
  2. ACETAMINOPHEN [Suspect]
     Indication: PRODUCT USED FOR UNKNOWN INDICATION
     Route: 048
  3. ACETAMINOPHEN [Suspect]
     Route: 048

REACTIONS (2)
  - HEPATIC FAILURE [None]
  - RENAL FAILURE [None]
